FAERS Safety Report 18436675 (Version 1)
Quarter: 2020Q4

REPORT INFORMATION
  Report Type: Spontaneous
  Country: PL (occurrence: PL)
  Receive Date: 20201028
  Receipt Date: 20201028
  Transmission Date: 20210114
  Serious: Yes (Other)
  Sender: FDA-Public Use
  Company Number: NVSC2020PL281293

PATIENT
  Age: 41 Year
  Sex: Female
  Weight: 47.5 kg

DRUGS (4)
  1. VANCOMYCIN [Suspect]
     Active Substance: VANCOMYCIN
     Indication: SUBACUTE ENDOCARDITIS
     Dosage: 1 G, Q12H
     Route: 042
     Dates: start: 20180426
  2. CEFTRIAXON [Concomitant]
     Active Substance: CEFTRIAXONE
     Indication: PRODUCT USED FOR UNKNOWN INDICATION
     Dosage: UNK, 2X 1.0 (UNITS- NOT SPECIFIED)
     Route: 042
     Dates: start: 20180426
  3. WARFIN [Concomitant]
     Active Substance: WARFARIN
     Indication: PRODUCT USED FOR UNKNOWN INDICATION
     Dosage: UNK, ACCORDING TO INR
     Route: 048
  4. RIFAMPICINE [Concomitant]
     Active Substance: RIFAMPIN
     Indication: PRODUCT USED FOR UNKNOWN INDICATION
     Dosage: UNK, 2X 600 (UNITS- NOT SPECIFIED)
     Route: 048
     Dates: start: 20180426

REACTIONS (3)
  - Feeling hot [Recovered/Resolved]
  - Erythema [Recovered/Resolved]
  - Red man syndrome [Recovered/Resolved]
